FAERS Safety Report 9349131 (Version 1)
Quarter: 2013Q2

REPORT INFORMATION
  Report Type: Spontaneous
  Country: FR (occurrence: FR)
  Receive Date: 20130614
  Receipt Date: 20130614
  Transmission Date: 20140414
  Serious: Yes (Hospitalization)
  Sender: FDA-Public Use
  Company Number: FR-PFIZER INC-2013173332

PATIENT
  Age: 30 Year
  Sex: Female

DRUGS (4)
  1. SOLU-MEDROL [Suspect]
     Indication: RASH
     Dosage: UNK
     Dates: start: 20120625
  2. CELLCEPT [Suspect]
     Dosage: 3 G DAILY
     Dates: start: 20120626, end: 20120627
  3. CELLCEPT [Suspect]
     Dosage: 2 UNK, UNK
     Dates: start: 20120628
  4. CORTANCYL [Suspect]
     Dosage: UNK
     Dates: start: 20120625

REACTIONS (1)
  - Posterior reversible encephalopathy syndrome [Recovered/Resolved]
